FAERS Safety Report 10061000 (Version 2)
Quarter: 2014Q2

REPORT INFORMATION
  Report Type: Report from Study
  Country: US (occurrence: US)
  Receive Date: 20140405
  Receipt Date: 20140429
  Transmission Date: 20141212
  Serious: Yes (Hospitalization, Other)
  Sender: FDA-Public Use
  Company Number: US-ROCHE-1373211

PATIENT
  Age: 79 Year
  Sex: Female
  Weight: 68.71 kg

DRUGS (15)
  1. RITUXIMAB [Suspect]
     Indication: CHRONIC LYMPHOCYTIC LEUKAEMIA
     Route: 042
     Dates: start: 20131114, end: 20140204
  2. RITUXIMAB [Suspect]
     Route: 042
     Dates: start: 20131114, end: 20140107
  3. RITUXIMAB [Suspect]
     Route: 042
     Dates: start: 20140325
  4. BLINDED IDELALISIB [Suspect]
     Indication: CHRONIC LYMPHOCYTIC LEUKAEMIA
     Route: 042
     Dates: start: 20131114, end: 20140204
  5. BLINDED IDELALISIB [Suspect]
     Route: 042
     Dates: start: 20140325
  6. BENDAMUSTINE [Suspect]
     Indication: CHRONIC LYMPHOCYTIC LEUKAEMIA
     Route: 042
     Dates: start: 20131114, end: 20140204
  7. BENDAMUSTINE [Suspect]
     Route: 042
     Dates: start: 20140325
  8. ACYCLOVIR [Concomitant]
  9. FUROSEMIDE [Concomitant]
     Route: 065
     Dates: start: 20131004
  10. LISINOPRIL [Concomitant]
     Route: 065
     Dates: start: 20111102
  11. ONDANSETRON [Concomitant]
     Route: 065
     Dates: start: 20131115
  12. SIMVASTATIN [Concomitant]
     Route: 065
     Dates: start: 20111102
  13. SULFAMETHOXAZOL [Concomitant]
     Route: 065
     Dates: start: 20110325
  14. GENTAMYCIN [Concomitant]
  15. CLAFORAN [Concomitant]

REACTIONS (1)
  - Bile duct obstruction [Recovered/Resolved]
